FAERS Safety Report 10252893 (Version 1)
Quarter: 2014Q2

REPORT INFORMATION
  Report Type: Spontaneous
  Country: FR (occurrence: FR)
  Receive Date: 20140623
  Receipt Date: 20140623
  Transmission Date: 20141212
  Serious: Yes (Other)
  Sender: FDA-Public Use
  Company Number: FR-SA-2014SA082350

PATIENT
  Age: 81 Year
  Sex: Male

DRUGS (7)
  1. LOVENOX [Suspect]
     Indication: PRODUCT USED FOR UNKNOWN INDICATION
     Route: 065
  2. LEVOFLOXACIN [Suspect]
     Indication: DYSPNOEA
     Route: 065
     Dates: start: 201405, end: 201405
  3. PREDNISOLONE [Suspect]
     Indication: PRODUCT USED FOR UNKNOWN INDICATION
     Route: 065
  4. FORSTEO [Concomitant]
  5. PAROXETIN [Concomitant]
  6. CACIT VITAMINE D3 [Concomitant]
  7. KARDEGIC [Concomitant]

REACTIONS (1)
  - Tendon rupture [Recovering/Resolving]
